FAERS Safety Report 16072198 (Version 3)
Quarter: 2019Q2

REPORT INFORMATION
  Report Type: Spontaneous
  Country: US (occurrence: US)
  Receive Date: 20190314
  Receipt Date: 20190624
  Transmission Date: 20190711
  Serious: Yes (Other)
  Sender: FDA-Public Use
  Company Number: US-SA-2019SA068089

PATIENT
  Age: 80 Year
  Sex: Female

DRUGS (2)
  1. DUPIXENT [Suspect]
     Active Substance: DUPILUMAB
     Indication: ASTHMA
     Dosage: UNK UNK, 1X
     Dates: start: 201902, end: 201902
  2. DUPIXENT [Suspect]
     Active Substance: DUPILUMAB
     Dosage: 300 MG, QOW
     Route: 058
     Dates: start: 20190226

REACTIONS (9)
  - Sputum increased [Unknown]
  - Headache [Unknown]
  - Chest discomfort [Unknown]
  - Cough [Unknown]
  - Abdominal discomfort [Unknown]
  - Pruritus [Unknown]
  - Paraesthesia [Unknown]
  - Fatigue [Unknown]
  - Colon cancer stage IV [Unknown]

NARRATIVE: CASE EVENT DATE: 2019
